FAERS Safety Report 6727285-0 (Version None)
Quarter: 2010Q2

REPORT INFORMATION
  Report Type: 
  Country: None (occurrence: None)
  Receive Date: 20100517
  Receipt Date: 20100506
  Transmission Date: 20101027
  Serious: Yes (Disabling)
  Sender: FDA-Public Use
  Company Number: CA-ASTRAZENECA-2010SE20866

PATIENT
  Sex: Female

DRUGS (3)
  1. ARIMIDEX [Suspect]
     Route: 048
  2. CRESTOR [Concomitant]
     Route: 048
  3. DIOVAN [Concomitant]

REACTIONS (4)
  - ARTHRALGIA [None]
  - BURNING SENSATION [None]
  - JOINT STIFFNESS [None]
  - MUSCULOSKELETAL STIFFNESS [None]
